FAERS Safety Report 8158976-5 (Version None)
Quarter: 2012Q1

REPORT INFORMATION
  Report Type: 
  Country: None (occurrence: None)
  Receive Date: 20120223
  Receipt Date: 20120221
  Transmission Date: 20120608
  Serious: No
  Sender: FDA-Public Use
  Company Number: US-PFIZER INC-2012046051

PATIENT
  Sex: Male
  Weight: 79.365 kg

DRUGS (1)
  1. CHANTIX [Suspect]
     Indication: SMOKING CESSATION THERAPY
     Dosage: 0.5 MG, 1X/DAY
     Route: 048
     Dates: start: 20111201, end: 20120218

REACTIONS (4)
  - AGITATION [None]
  - WITHDRAWAL SYNDROME [None]
  - DEPRESSED MOOD [None]
  - IRRITABILITY [None]
